FAERS Safety Report 7604858-4 (Version None)
Quarter: 2011Q3

REPORT INFORMATION
  Report Type: 
  Country: None (occurrence: None)
  Receive Date: 20110712
  Receipt Date: 20110708
  Transmission Date: 20111222
  Serious: Yes (Other)
  Sender: FDA-Public Use
  Company Number: US-RB-029858-11

PATIENT
  Age: 51 Year
  Sex: Male

DRUGS (1)
  1. SUBOXONE [Suspect]
     Indication: DRUG DEPENDENCE
     Dosage: SUBLINGUAL FILM UNIT DOSE 8 MG, 12 MG INITIAL DOSE.
     Route: 060
     Dates: start: 20110629

REACTIONS (9)
  - CONVULSION [None]
  - CONFUSIONAL STATE [None]
  - HALLUCINATION [None]
  - MUSCLE SPASMS [None]
  - INSOMNIA [None]
  - DYSKINESIA [None]
  - OFF LABEL USE [None]
  - DRUG WITHDRAWAL SYNDROME [None]
  - AGITATION [None]
